FAERS Safety Report 4865168-1 (Version None)
Quarter: 2005Q4

REPORT INFORMATION
  Report Type: 
  Country: None (occurrence: None)
  Receive Date: 20051221
  Receipt Date: 20051221
  Transmission Date: 20060501
  Serious: Yes (Life-Threatening)
  Sender: FDA-Public Use
  Company Number: None

PATIENT
  Age: 57 Year
  Sex: Female
  Weight: 79.3795 kg

DRUGS (1)
  1. ALTACE [Suspect]
     Dosage: 10, 5, THEN 2.5    1 PER DAY  PO
     Route: 048
     Dates: start: 20041101, end: 20051207

REACTIONS (4)
  - BONE MARROW FAILURE [None]
  - CONTRAINDICATION TO MEDICAL TREATMENT [None]
  - PLATELET COUNT DECREASED [None]
  - WHITE BLOOD CELL COUNT DECREASED [None]
